FAERS Safety Report 8416405-8 (Version None)
Quarter: 2012Q2

REPORT INFORMATION
  Report Type: 
  Country: None (occurrence: None)
  Receive Date: 20120606
  Receipt Date: 20120526
  Transmission Date: 20120825
  Serious: Yes (Other)
  Sender: FDA-Public Use
  Company Number: JP-ELI_LILLY_AND_COMPANY-JP201111009114

PATIENT
  Age: 80 Year
  Sex: Female

DRUGS (1)
  1. FORTEO [Suspect]
     Dosage: UNK
     Route: 058
     Dates: end: 20120501

REACTIONS (8)
  - BLOOD PRESSURE DECREASED [None]
  - CHEST PAIN [None]
  - GASTRITIS EROSIVE [None]
  - NAUSEA [None]
  - LUMBAR VERTEBRAL FRACTURE [None]
  - PYREXIA [None]
  - LOSS OF CONSCIOUSNESS [None]
  - CARDIAC OPERATION [None]
